FAERS Safety Report 7487801-0 (Version None)
Quarter: 2011Q2

REPORT INFORMATION
  Report Type: 
  Country: None (occurrence: None)
  Receive Date: 20110518
  Receipt Date: 20110503
  Transmission Date: 20111010
  Serious: Yes (Other)
  Sender: FDA-Public Use
  Company Number: ID-JNJFOC-20110501670

PATIENT
  Age: 16 Year
  Sex: Male

DRUGS (2)
  1. ASPIRIN [Concomitant]
  2. INFLIXIMAB, RECOMBINANT [Suspect]
     Indication: KAWASAKI'S DISEASE
     Route: 042

REACTIONS (1)
  - DRUG INEFFECTIVE [None]
